FAERS Safety Report 6550368-5 (Version None)
Quarter: 2010Q1

REPORT INFORMATION
  Report Type: 
  Country: None (occurrence: None)
  Receive Date: 20100125
  Receipt Date: 20100115
  Transmission Date: 20100710
  Serious: Yes (Death, Hospitalization)
  Sender: FDA-Public Use
  Company Number: US-JNJFOC-20080104622

PATIENT
  Sex: Female
  Weight: 50.35 kg

DRUGS (27)
  1. INFLIXIMAB [Suspect]
     Indication: CROHN'S DISEASE
  2. INFLIXIMAB [Suspect]
  3. INFLIXIMAB [Suspect]
  4. INFLIXIMAB [Suspect]
  5. INFLIXIMAB [Suspect]
  6. INFLIXIMAB [Suspect]
  7. INFLIXIMAB [Suspect]
  8. INFLIXIMAB [Suspect]
  9. INFLIXIMAB [Suspect]
  10. INFLIXIMAB [Suspect]
  11. INFLIXIMAB [Suspect]
  12. INFLIXIMAB [Suspect]
  13. INFLIXIMAB [Suspect]
  14. INFLIXIMAB [Suspect]
  15. INFLIXIMAB [Suspect]
  16. INFLIXIMAB [Suspect]
  17. INFLIXIMAB [Suspect]
  18. INFLIXIMAB [Suspect]
  19. INFLIXIMAB [Suspect]
  20. INFLIXIMAB [Suspect]
  21. ANTIDEPRESSANTS [Concomitant]
  22. MERCAPTOPURINE [Concomitant]
     Indication: CROHN'S DISEASE
  23. ACETAMINOPHREN [Concomitant]
     Indication: PREMEDICATION
  24. ANTIHISTAMINES [Concomitant]
     Indication: PREMEDICATION
  25. UNSPECIFIED NARCOTIC [Concomitant]
     Indication: CROHN'S DISEASE
  26. PREDNISONE [Concomitant]
     Indication: CROHN'S DISEASE
  27. ADALIMUMAB [Concomitant]
     Indication: CROHN'S DISEASE

REACTIONS (1)
  - EMPHYSEMA [None]
